FAERS Safety Report 4663616-3 (Version None)
Quarter: 2005Q2

REPORT INFORMATION
  Report Type: 
  Country: None (occurrence: None)
  Receive Date: 20050517
  Receipt Date: 20050421
  Transmission Date: 20051028
  Serious: Yes (Other)
  Sender: FDA-Public Use
  Company Number: DE-GLAXOSMITHKLINE-D0046428A

PATIENT
  Age: 66 Year
  Sex: Female

DRUGS (1)
  1. DERMOXIN [Suspect]
     Indication: PSORIASIS
     Route: 061
     Dates: end: 20050401

REACTIONS (4)
  - SELF-MEDICATION [None]
  - SKIN ATROPHY [None]
  - SKIN HAEMORRHAGE [None]
  - TRAUMATIC HAEMATOMA [None]
